FAERS Safety Report 9156821 (Version 1)
Quarter: 2013Q2

REPORT INFORMATION
  Report Type: Spontaneous
  Country: IT (occurrence: IT)
  Receive Date: 20130312
  Receipt Date: 20130312
  Transmission Date: 20140414
  Serious: Yes (Hospitalization)
  Sender: FDA-Public Use
  Company Number: IT-ACCORD-016796

PATIENT
  Age: 37 Year
  Sex: Female

DRUGS (7)
  1. CISPLATIN [Suspect]
     Indication: ADRENOCORTICAL CARCINOMA
     Route: 042
     Dates: start: 20121214, end: 20121227
  2. DOXORUBICIN [Suspect]
     Indication: ADRENOCORTICAL CARCINOMA
     Route: 042
     Dates: start: 20121214, end: 20121227
  3. ETOPOSIDE [Suspect]
     Indication: ADRENOCORTICAL CARCINOMA
     Route: 042
     Dates: start: 20121214, end: 20121227
  4. MITOTANE [Concomitant]
  5. CORTONE ACETATO [Concomitant]
  6. EUTIROX [Concomitant]
  7. SELEPARINA [Concomitant]

REACTIONS (2)
  - Pulmonary embolism [Recovered/Resolved]
  - Off label use [Unknown]
